FAERS Safety Report 5097857-0 (Version None)
Quarter: 2006Q3

REPORT INFORMATION
  Report Type: 
  Country: None (occurrence: None)
  Receive Date: 20060905
  Receipt Date: 20060828
  Transmission Date: 20061208
  Serious: Yes (Hospitalization, Other)
  Sender: FDA-Public Use
  Company Number: FRWYE790828AUG06

PATIENT
  Age: 59 Year
  Sex: Female

DRUGS (8)
  1. TAZOCILLINE (PIPERACILLIN/TAZOBACTAM, INJECTION) [Suspect]
     Indication: CELLULITIS
     Dosage: INTRAVENOUS
     Route: 042
     Dates: start: 20060223, end: 20060228
  2. TAZOCILLINE (PIPERACILLIN/TAZOBACTAM, INJECTION) [Suspect]
     Indication: DERMO-HYPODERMITIS
     Dosage: INTRAVENOUS
     Route: 042
     Dates: start: 20060223, end: 20060228
  3. CLINDAMYCIN PHOSPHATE [Suspect]
     Dosage: IM
     Route: 030
     Dates: start: 20060221, end: 20060302
  4. LASIX [Concomitant]
  5. COZAAR [Concomitant]
  6. SPIRONOLACTONE [Concomitant]
  7. LERCANIDIPNE (LERCANIDIPINE) [Concomitant]
  8. MAXAIR [Concomitant]

REACTIONS (5)
  - DEHYDRATION [None]
  - RENAL FAILURE ACUTE [None]
  - TOXIC SKIN ERUPTION [None]
  - TYPE IV HYPERSENSITIVITY REACTION [None]
  - URINARY RETENTION [None]
